FAERS Safety Report 8613853-8 (Version None)
Quarter: 2012Q3

REPORT INFORMATION
  Report Type: 
  Country: None (occurrence: None)
  Receive Date: 20120823
  Receipt Date: 20120809
  Transmission Date: 20120928
  Serious: Yes (Hospitalization)
  Sender: FDA-Public Use
  Company Number: PH-009507513-1207PHL008352

PATIENT

DRUGS (3)
  1. REBETOL [Suspect]
     Dosage: 800 MG, UNK
     Dates: end: 20120802
  2. PEG-INTRON [Suspect]
     Dosage: 80 MICROGRAM, QW
     Dates: start: 20120628
  3. REBETOL [Suspect]
     Dosage: 400 UNK, UNK
     Dates: start: 20120802

REACTIONS (4)
  - RED BLOOD CELL COUNT DECREASED [None]
  - ASTHENIA [None]
  - FATIGUE [None]
  - HAEMOGLOBIN DECREASED [None]
